FAERS Safety Report 26040623 (Version 1)
Quarter: 2025Q4

REPORT INFORMATION
  Report Type: Spontaneous
  Country: US (occurrence: None)
  Receive Date: 20251112
  Receipt Date: 20251112
  Transmission Date: 20260118
  Serious: Yes (Hospitalization)
  Sender: FDA-CTU
  Company Number: None

PATIENT
  Sex: Male

DRUGS (13)
  1. LENALIDOMIDE [Suspect]
     Active Substance: LENALIDOMIDE
     Indication: Plasma cell myeloma
     Dosage: TAKE 1 CAPSULE BY MOUTH DAILY ON DAYS 1-14 STARTING THE DAY OF VELCADE INJECTION AND THEN TAKE 7 DAYS OFF  EACH 21 DAY CYCLE. TAKE WHOLE WITH WATER.DO NOT BREAK, CHEW, OR OPEN?
     Route: 048
     Dates: start: 20241212
  2. VELCADE [Suspect]
     Active Substance: BORTEZOMIB
  3. DARZALEX [Suspect]
     Active Substance: DARATUMUMAB
  4. ALPHA LIPOIC TAB ACID [Concomitant]
  5. ASPIRIN [Concomitant]
     Active Substance: ASPIRIN
  6. CALCIUM 500 TAB +D [Concomitant]
  7. CRANBERRY CAP 1000MG [Concomitant]
  8. DARZALEX SOL 400/20ML [Concomitant]
  9. IBUPROFEN [Concomitant]
     Active Substance: IBUPROFEN
  10. MULTIPLE VIT TAB [Concomitant]
  11. POTASSIUM POW CHLORIDE [Concomitant]
  12. SAW PALMETTO CAP COMPLEX [Concomitant]
  13. TURMERIC CAP 500MG [Concomitant]

REACTIONS (6)
  - Gastrointestinal haemorrhage [None]
  - Ulcer haemorrhage [None]
  - Muscle tightness [None]
  - Memory impairment [None]
  - Neuropathy peripheral [None]
  - Therapy interrupted [None]
